FAERS Safety Report 6847923-1 (Version None)
Quarter: 2010Q3

REPORT INFORMATION
  Report Type: 
  Country: None (occurrence: None)
  Receive Date: 20100716
  Receipt Date: 20100708
  Transmission Date: 20110219
  Serious: Yes (Hospitalization)
  Sender: FDA-Public Use
  Company Number: IE-PFIZER INC-2009310110

PATIENT
  Age: 70 Year
  Sex: Male
  Weight: 65 kg

DRUGS (2)
  1. ZYVOX [Suspect]
     Indication: ENDOCARDITIS
     Dosage: 600 MG, 2X/DAY
     Route: 048
     Dates: start: 20090901, end: 20091001
  2. ATORVASTATIN [Concomitant]
     Dosage: 20 MG, UNK
     Route: 048

REACTIONS (6)
  - ABDOMINAL PAIN [None]
  - APHAGIA [None]
  - ASTHENIA [None]
  - MALAISE [None]
  - NAUSEA [None]
  - THROMBOCYTOPENIA [None]
